FAERS Safety Report 10028201 (Version 2)
Quarter: 2014Q2

REPORT INFORMATION
  Report Type: Spontaneous
  Country: US (occurrence: None)
  Receive Date: 20140319
  Receipt Date: 20140529
  Transmission Date: 20141212
  Serious: Yes (Hospitalization)
  Sender: FDA-Public Use
  Company Number: UTC-045693

PATIENT
  Age: 55 Year
  Sex: Male
  Weight: 76 kg

DRUGS (4)
  1. REMODULIN (TREPROSTINIL SODIUM (SQ/IV)) INJECTION, 10 MG/ML [Suspect]
     Indication: COR PULMONALE CHRONIC
     Route: 041
     Dates: start: 20120628
  2. LETAIRIS (AMBRISENTAN) (TABLETS) [Concomitant]
  3. ADCIRCA (TADALAFIL) [Concomitant]
  4. OPSUMIT [Concomitant]

REACTIONS (1)
  - Gastrointestinal haemorrhage [None]
